FAERS Safety Report 24294191 (Version 1)
Quarter: 2024Q3

REPORT INFORMATION
  Report Type: Spontaneous
  Country: US (occurrence: US)
  Receive Date: 20240906
  Receipt Date: 20240906
  Transmission Date: 20241017
  Serious: No
  Sender: DOMPE FARMACEUTICI
  Company Number: US-FARMAPROD-202308-202405-1878

PATIENT
  Age: 73 Year
  Sex: Female

DRUGS (30)
  1. OXERVATE [Suspect]
     Active Substance: CENEGERMIN-BKBJ
     Indication: Neurotrophic keratopathy
     Route: 047
     Dates: start: 20240512
  2. OXERVATE [Suspect]
     Active Substance: CENEGERMIN-BKBJ
  3. OXERVATE [Suspect]
     Active Substance: CENEGERMIN-BKBJ
  4. OXERVATE [Suspect]
     Active Substance: CENEGERMIN-BKBJ
  5. OXERVATE [Suspect]
     Active Substance: CENEGERMIN-BKBJ
  6. LEVOTHYROXINE SODIUM [Concomitant]
     Active Substance: LEVOTHYROXINE SODIUM
  7. BIOTIN [Concomitant]
     Active Substance: BIOTIN
  8. METAMUCIL [Concomitant]
     Active Substance: PLANTAGO SEED
     Dosage: 3.4G/11G
  9. MELATONIN [Concomitant]
     Active Substance: MELATONIN
  10. XANAX [Concomitant]
     Active Substance: ALPRAZOLAM
  11. TOPAMAX [Concomitant]
     Active Substance: TOPIRAMATE
  12. AMITRIPTYLINE HYDROCHLORIDE [Concomitant]
     Active Substance: AMITRIPTYLINE HYDROCHLORIDE
  13. ACYCLOVIR [Concomitant]
     Active Substance: ACYCLOVIR
  14. DULCOLAX [Concomitant]
  15. MAGNESIUM [Concomitant]
     Active Substance: MAGNESIUM
  16. CALCIUM\CHOLECALCIFEROL [Concomitant]
     Active Substance: CALCIUM\CHOLECALCIFEROL
     Dosage: 600MG-12.5
  17. AMLODIPINE BESYLATE [Concomitant]
     Active Substance: AMLODIPINE BESYLATE
  18. OMEGA-3-FISH OIL-VIT D3 [Concomitant]
  19. LISINOPRIL [Concomitant]
     Active Substance: LISINOPRIL
  20. BUPROPION HYDROCHLORIDE [Concomitant]
     Active Substance: BUPROPION HYDROCHLORIDE
     Dosage: 12 HOURS
  21. ESOMEPRAZOLE MAGNESIUM [Concomitant]
     Active Substance: ESOMEPRAZOLE MAGNESIUM
  22. BRIMONIDINE TARTRATE-TIMOLOL [Concomitant]
  23. DORZOLAMIDE\TIMOLOL [Concomitant]
     Active Substance: DORZOLAMIDE\TIMOLOL
  24. PREDNISOLONE-BROMFENAC [Concomitant]
  25. REFRESH TEARS [Concomitant]
     Active Substance: CARBOXYMETHYLCELLULOSE SODIUM
  26. RHOPRESSA [Concomitant]
     Active Substance: NETARSUDIL MESYLATE
  27. DORZOLAMIDE HYDROCHLORIDE [Concomitant]
     Active Substance: DORZOLAMIDE HYDROCHLORIDE
  28. IVIZIA [Concomitant]
     Active Substance: POVIDONE
  29. LACTULOSE [Concomitant]
     Active Substance: LACTULOSE
     Dosage: 10 G/15 ML
  30. PREDNISOLONE-BROMFENAC [Concomitant]

REACTIONS (3)
  - Eye pain [Not Recovered/Not Resolved]
  - Wrong technique in product usage process [Unknown]
  - Eye irritation [Unknown]

NARRATIVE: CASE EVENT DATE: 20240601
